FAERS Safety Report 23451891 (Version 2)
Quarter: 2024Q1

REPORT INFORMATION
  Report Type: Spontaneous
  Country: US (occurrence: US)
  Receive Date: 20240129
  Receipt Date: 20240131
  Transmission Date: 20240409
  Serious: Yes (Life-Threatening, Hospitalization, Other)
  Sender: FDA-Public Use
  Company Number: US-MLMSERVICE-20240117-4779194-1

PATIENT
  Age: 33 Year
  Sex: Female

DRUGS (2)
  1. GEMCITABINE HYDROCHLORIDE [Suspect]
     Active Substance: GEMCITABINE HYDROCHLORIDE
     Indication: Cholangiocarcinoma
     Dosage: X2 DOSES, CYCLIC
     Dates: start: 20210107, end: 2021
  2. CISPLATIN [Suspect]
     Active Substance: CISPLATIN
     Indication: Cholangiocarcinoma
     Dosage: X2 DOSES, CYCLIC
     Dates: start: 20210107, end: 2021

REACTIONS (10)
  - Escherichia infection [Recovered/Resolved]
  - Hyperbilirubinaemia [Recovering/Resolving]
  - Staphylococcal bacteraemia [Recovered/Resolved]
  - Pneumonia [Unknown]
  - Condition aggravated [Recovering/Resolving]
  - Hepatic function abnormal [Recovering/Resolving]
  - Ascites [Recovering/Resolving]
  - Urinary tract infection bacterial [Recovered/Resolved]
  - Staphylococcal infection [Recovered/Resolved]
  - Off label use [Unknown]

NARRATIVE: CASE EVENT DATE: 20210101
